FAERS Safety Report 22773336 (Version 2)
Quarter: 2023Q4

REPORT INFORMATION
  Report Type: Spontaneous
  Country: HK (occurrence: HK)
  Receive Date: 20230801
  Receipt Date: 20231006
  Transmission Date: 20240109
  Serious: Yes (Hospitalization)
  Sender: FDA-Public Use
  Company Number: HK-BAYER-2023A107948

PATIENT
  Age: 6 Decade
  Sex: Female

DRUGS (1)
  1. ULTRAVIST [Suspect]
     Active Substance: IOPROMIDE
     Indication: Computerised tomogram abdomen
     Dosage: 60 ML, ONCE, 2.5ML/SEC INJECTED
     Dates: start: 20230729, end: 20230729

REACTIONS (6)
  - Feeling hot [None]
  - Erythema [None]
  - Ocular hyperaemia [None]
  - Swelling of eyelid [None]
  - Mouth swelling [None]
  - Blood pressure decreased [None]

NARRATIVE: CASE EVENT DATE: 20230729
